FAERS Safety Report 4341791-8 (Version None)
Quarter: 2004Q2

REPORT INFORMATION
  Report Type: 
  Country: None (occurrence: None)
  Receive Date: 20040415
  Receipt Date: 20040331
  Transmission Date: 20050107
  Serious: Yes (Death, Hospitalization)
  Sender: FDA-Public Use
  Company Number: 2004-0006868

PATIENT
  Age: 71 Year
  Sex: Male
  Weight: 64 kg

DRUGS (8)
  1. ADEFOVIR DIPIVOXIL (ADEFOVIR DIPIVOXIL) [Suspect]
     Indication: HEPATITIS B
     Dosage: 10 MG, 1 IN 1 D, ORAL
     Route: 048
     Dates: start: 20031216, end: 20040312
  2. ALLOPURINOL [Concomitant]
  3. PREDNISONE [Concomitant]
  4. HEPTOVIR (LAMIVUDINE) [Concomitant]
  5. LASIX [Concomitant]
  6. ALDACTONE [Concomitant]
  7. NITRO SPRAY (ISOSORBIDE DINITRATE) [Concomitant]
  8. LEUKERAN [Concomitant]

REACTIONS (2)
  - ANGIOGRAM [None]
  - ILL-DEFINED DISORDER [None]
